FAERS Safety Report 5218270-9 (Version None)
Quarter: 2007Q1

REPORT INFORMATION
  Report Type: 
  Country: None (occurrence: None)
  Receive Date: 20061130
  Receipt Date: 20060825
  Transmission Date: 20070707
  Serious: Yes (Hospitalization, Other)
  Sender: FDA-Public Use
  Company Number: US200603001248

PATIENT
  Sex: Male
  Weight: 98.9 kg

DRUGS (1)
  1. ZYPREXA [Suspect]
     Dates: start: 19990101, end: 20030101

REACTIONS (3)
  - DIABETES MELLITUS [None]
  - HEPATIC ENZYME INCREASED [None]
  - PANCREATITIS [None]
